FAERS Safety Report 9312364 (Version 2)
Quarter: 2013Q4

REPORT INFORMATION
  Report Type: Spontaneous
  Country: US (occurrence: US)
  Receive Date: 20130528
  Receipt Date: 20131125
  Transmission Date: 20140711
  Serious: Yes (Hospitalization)
  Sender: FDA-Public Use
  Company Number: US-TARO-2013P1006226

PATIENT
  Age: 71 Year
  Sex: Male

DRUGS (8)
  1. ZYCLARA (IMIQUIMOD) 3.75% TOPICAL CREAM [Suspect]
     Indication: ACTINIC KERATOSIS
     Route: 061
     Dates: start: 20130327, end: 20130410
  2. ZYCLARA (IMIQUIMOD) 3.75% TOPICAL CREAM [Suspect]
     Indication: ACTINIC KERATOSIS
     Route: 061
     Dates: start: 20130424, end: 20130507
  3. LIPITOR [Concomitant]
     Route: 048
     Dates: start: 201203
  4. PLAVIX [Concomitant]
     Route: 048
     Dates: start: 201203
  5. ASPIRIN [Concomitant]
     Route: 048
     Dates: start: 201203
  6. METOPROLOL SUCCINATE [Concomitant]
     Route: 048
     Dates: start: 2008
  7. LOSARTAN [Concomitant]
     Route: 048
     Dates: start: 2008
  8. FINASTERIDE [Concomitant]
     Route: 048
     Dates: start: 201201

REACTIONS (1)
  - Dizziness [Recovered/Resolved]
